FAERS Safety Report 5243550-0 (Version None)
Quarter: 2007Q1

REPORT INFORMATION
  Report Type: 
  Country: None (occurrence: None)
  Receive Date: 20070222
  Receipt Date: 20070207
  Transmission Date: 20070707
  Serious: Yes (Hospitalization, Other)
  Sender: FDA-Public Use
  Company Number: PHHO2007PH02618

PATIENT
  Age: 56 Year
  Sex: Male

DRUGS (5)
  1. GLEEVEC [Suspect]
     Indication: GASTROINTESTINAL STROMAL TUMOUR
     Dosage: 400 MG, QD
     Route: 048
     Dates: start: 20061109
  2. NEOBLOC [Concomitant]
  3. PERINDOPRIL ERBUMINE [Concomitant]
  4. FORTIFER [Concomitant]
  5. GLUCOVANCE [Concomitant]

REACTIONS (4)
  - ALBUMINURIA [None]
  - BLOOD CREATININE INCREASED [None]
  - HAEMATURIA [None]
  - HAEMORRHAGE [None]
